FAERS Safety Report 5847088-9 (Version None)
Quarter: 2008Q3

REPORT INFORMATION
  Report Type: 
  Country: None (occurrence: None)
  Receive Date: 20080815
  Receipt Date: 20080808
  Transmission Date: 20090109
  Serious: Yes (Hospitalization)
  Sender: FDA-Public Use
  Company Number: CA-ASTRAZENECA-2008UW15914

PATIENT
  Age: 10275 Day
  Sex: Male

DRUGS (10)
  1. SEROQUEL XR [Suspect]
     Indication: SCHIZOPHRENIA
     Route: 048
     Dates: start: 20080722, end: 20080722
  2. SEROQUEL XR [Suspect]
     Route: 048
     Dates: start: 20080723, end: 20080723
  3. SEROQUEL XR [Suspect]
     Route: 048
     Dates: start: 20080724, end: 20080806
  4. SEROQUEL [Concomitant]
     Indication: SCHIZOPHRENIA
     Route: 048
     Dates: start: 20080611, end: 20080722
  5. SEROQUEL [Concomitant]
     Route: 048
     Dates: start: 20080722, end: 20080723
  6. SEROQUEL [Concomitant]
     Route: 048
     Dates: start: 20080723, end: 20080724
  7. ZYPREXA ZYDIS [Concomitant]
     Indication: SCHIZOPHRENIA
     Route: 048
     Dates: start: 20080709, end: 20080722
  8. ZYPREXA ZYDIS [Concomitant]
     Route: 048
     Dates: start: 20080722, end: 20080723
  9. ZYPREXA ZYDIS [Concomitant]
     Route: 048
     Dates: start: 20080723, end: 20080724
  10. WELLBUTRIN XL [Concomitant]
     Indication: DEPRESSION
     Route: 048

REACTIONS (1)
  - PSYCHOTIC DISORDER [None]
